FAERS Safety Report 6570600-1 (Version None)
Quarter: 2010Q1

REPORT INFORMATION
  Report Type: 
  Country: None (occurrence: None)
  Receive Date: 20100204
  Receipt Date: 20100128
  Transmission Date: 20100710
  Serious: No
  Sender: FDA-Public Use
  Company Number: US-B.I. PHARMACEUTICALS,INC./RIDGEFIELD-2010-BP-00346BP

PATIENT
  Age: 86 Year
  Sex: Male
  Weight: 88 kg

DRUGS (5)
  1. FLOMAX [Suspect]
     Indication: BENIGN PROSTATIC HYPERPLASIA
     Dosage: 0.4 MG
     Route: 048
     Dates: start: 20091210, end: 20100101
  2. SYNTHROID [Concomitant]
     Dosage: 25 MCG
  3. PRAVACHOL [Concomitant]
  4. VOLTAREN [Concomitant]
     Dosage: 100 MG
  5. ASPIRIN [Concomitant]
     Dosage: 81 MG

REACTIONS (1)
  - OEDEMA PERIPHERAL [None]
